FAERS Safety Report 17497814 (Version 1)
Quarter: 2020Q1

REPORT INFORMATION
  Report Type: Report from Study
  Country: None (occurrence: BR)
  Receive Date: 20200304
  Receipt Date: 20200304
  Transmission Date: 20200409
  Serious: Yes (Hospitalization, Other)
  Sender: FDA-Public Use
  Company Number: BR-ABBVIE-20K-020-3299339-00

PATIENT
  Age: 63 Year
  Sex: Male
  Weight: 62 kg

DRUGS (1)
  1. HUMIRA [Suspect]
     Active Substance: ADALIMUMAB
     Indication: PSORIATIC ARTHROPATHY
     Dosage: 1 UNSPECIFIC DOSE
     Route: 058
     Dates: start: 20160203, end: 201909

REACTIONS (3)
  - Weight decreased [Recovering/Resolving]
  - Muscle atrophy [Recovering/Resolving]
  - Bacterial infection [Recovered/Resolved]

NARRATIVE: CASE EVENT DATE: 201909
